FAERS Safety Report 18780102 (Version 1)
Quarter: 2021Q1

REPORT INFORMATION
  Report Type: Spontaneous
  Country: US (occurrence: US)
  Receive Date: 20210125
  Receipt Date: 20210125
  Transmission Date: 20210419
  Serious: Yes (Other)
  Sender: FDA-Public Use
  Company Number: NVSC2021US012961

PATIENT
  Age: 35 Year
  Sex: Male

DRUGS (2)
  1. DECITABINE. [Suspect]
     Active Substance: DECITABINE
     Indication: ACUTE MYELOID LEUKAEMIA
     Dosage: UNK UNK, CYCLIC (2 CYCLES)
     Route: 065
  2. DECITABINE. [Suspect]
     Active Substance: DECITABINE
     Dosage: UNK UNK, CYCLIC (4 CYCLES)
     Route: 065

REACTIONS (3)
  - Product use in unapproved indication [Unknown]
  - Acute myeloid leukaemia [Unknown]
  - Malignant neoplasm progression [Unknown]
